FAERS Safety Report 7919810-9 (Version None)
Quarter: 2011Q4

REPORT INFORMATION
  Report Type: 
  Country: None (occurrence: None)
  Receive Date: 20111117
  Receipt Date: 20111117
  Transmission Date: 20120403
  Serious: Yes (Life-Threatening, Hospitalization)
  Sender: FDA-Public Use
  Company Number: None

PATIENT
  Age: 57 Year
  Sex: Male

DRUGS (2)
  1. LUCENTIS [Suspect]
     Indication: RETINAL VEIN OCCLUSION
     Dosage: 0.5 MG
     Route: 031
     Dates: start: 20110721, end: 20111116
  2. LUCENTIS [Suspect]
     Indication: MACULAR OEDEMA
     Dosage: 0.5 MG
     Route: 031
     Dates: start: 20110721, end: 20111116

REACTIONS (1)
  - MYOCARDIAL INFARCTION [None]
